FAERS Safety Report 7878722-X (Version None)
Quarter: 2011Q4

REPORT INFORMATION
  Report Type: 
  Country: None (occurrence: None)
  Receive Date: 20111101
  Receipt Date: 20111020
  Transmission Date: 20120403
  Serious: Yes (Hospitalization, Other)
  Sender: FDA-Public Use
  Company Number: US-BAYER-2011-001605

PATIENT
  Age: 41 Year
  Sex: Female
  Weight: 52.154 kg

DRUGS (8)
  1. RELPAX [Concomitant]
     Dosage: 40 MG, UNK
     Route: 048
  2. YAZ [Suspect]
     Route: 048
  3. DROSPIRENONE AND ETHINYL ESTRADIOL [Suspect]
     Indication: ACNE
     Route: 048
     Dates: start: 20060501, end: 20091001
  4. ATENOLOL [Concomitant]
     Dosage: 50 MG, QD
     Route: 048
  5. PROCHLORPERAZINE [Concomitant]
  6. YAZ [Suspect]
     Indication: ACNE
     Dosage: UNK
     Route: 048
     Dates: start: 20060501, end: 20091001
  7. YASMIN [Suspect]
     Indication: ACNE
     Route: 048
     Dates: start: 20060501, end: 20091001
  8. NORTRIPTYLINE HCL [Concomitant]
     Dosage: 50 MG, UNK

REACTIONS (6)
  - GALLBLADDER DISORDER [None]
  - INJURY [None]
  - CHOLELITHIASIS [None]
  - ABDOMINAL HERNIA [None]
  - CHOLECYSTITIS ACUTE [None]
  - PAIN [None]
